FAERS Safety Report 11066695 (Version 1)
Quarter: 2015Q2

REPORT INFORMATION
  Report Type: Spontaneous
  Country: US (occurrence: None)
  Receive Date: 20150416
  Receipt Date: 20150416
  Transmission Date: 20150821
  Serious: Yes (Other)
  Sender: FDA-Public Use
  Company Number: 2013P1012339

PATIENT
  Age: 73 Year
  Sex: Male

DRUGS (5)
  1. TRAVATAN [Concomitant]
     Active Substance: TRAVOPROST
  2. RESTASIS [Concomitant]
     Active Substance: CYCLOSPORINE
  3. AZOPT [Concomitant]
     Active Substance: BRINZOLAMIDE
  4. RILUTEK [Suspect]
     Active Substance: RILUZOLE
     Indication: AMYOTROPHIC LATERAL SCLEROSIS
     Route: 048
     Dates: start: 20120626, end: 201306
  5. AMLODIPINE [Concomitant]
     Active Substance: AMLODIPINE BESYLATE

REACTIONS (1)
  - Amyotrophic lateral sclerosis [None]

NARRATIVE: CASE EVENT DATE: 2013
